FAERS Safety Report 5399770-8 (Version None)
Quarter: 2007Q3

REPORT INFORMATION
  Report Type: 
  Country: None (occurrence: None)
  Receive Date: 20070727
  Receipt Date: 20070716
  Transmission Date: 20080115
  Serious: Yes (Hospitalization, Other)
  Sender: FDA-Public Use
  Company Number: US-PFIZER INC-2007058528

PATIENT
  Sex: Male
  Weight: 79.8 kg

DRUGS (5)
  1. GEODON [Suspect]
     Indication: BIPOLAR DISORDER
  2. TAMSULOSIN HCL [Concomitant]
  3. ACIPHEX [Concomitant]
  4. FIBERCON [Concomitant]
  5. COLACE [Concomitant]

REACTIONS (7)
  - BURNING SENSATION [None]
  - CONSTIPATION [None]
  - FATIGUE [None]
  - HUNGER [None]
  - MANIA [None]
  - PARAESTHESIA [None]
  - SEDATION [None]
